FAERS Safety Report 10958461 (Version 3)
Quarter: 2015Q2

REPORT INFORMATION
  Report Type: Report from Study
  Country: NZ (occurrence: NZ)
  Receive Date: 20150326
  Receipt Date: 20150413
  Transmission Date: 20150821
  Serious: Yes (Other)
  Sender: FDA-Public Use
  Company Number: NZ-B.I. PHARMACEUTICALS,INC./RIDGEFIELD-2015-BI-11339BI

PATIENT
  Age: 41 Year
  Sex: Female
  Weight: 111.29 kg

DRUGS (22)
  1. QUINAPRIL [Concomitant]
     Active Substance: QUINAPRIL\QUINAPRIL HYDROCHLORIDE
     Indication: HYPERTENSION
     Dosage: 10 MG
     Route: 048
     Dates: start: 20101120
  2. FERROUS FUMARATE [Concomitant]
     Active Substance: FERROUS FUMARATE
     Indication: IRON DEFICIENCY ANAEMIA
     Dosage: 2 ANZ
     Route: 048
     Dates: start: 20110617
  3. IBUPROFEN. [Concomitant]
     Active Substance: IBUPROFEN
     Indication: MENORRHAGIA
     Dosage: DOSE PER APPLICATION AND DAILY DOSE: 200-400 MG PRN
     Route: 048
     Dates: start: 20141016
  4. BI 1356 [Suspect]
     Active Substance: LINAGLIPTIN
     Indication: TYPE 2 DIABETES MELLITUS
     Dosage: 5 MG
     Route: 048
     Dates: start: 20140910, end: 20150224
  5. MICREME H [Concomitant]
     Indication: DERMATITIS ALLERGIC
     Dosage: DOSE PER APPLICATION AND DAILY DOSE: 3 APPLICATIONS
     Route: 061
     Dates: start: 20141001
  6. HABITROL [Concomitant]
     Active Substance: NICOTINE
     Indication: SMOKING CESSATION THERAPY
     Dosage: ROUTE: PATCH ; DAILY DOSE: 1
     Route: 050
     Dates: start: 20141001
  7. PARACETAMOL [Concomitant]
     Active Substance: ACETAMINOPHEN
     Indication: DIARRHOEA
  8. IBUPROFEN. [Concomitant]
     Active Substance: IBUPROFEN
     Indication: DERMATITIS ALLERGIC
  9. SIMVASTATIN. [Concomitant]
     Active Substance: SIMVASTATIN
     Indication: DYSLIPIDAEMIA
     Dosage: 40 MG
     Route: 048
     Dates: start: 20110617
  10. ONDANSETRON [Concomitant]
     Active Substance: ONDANSETRON
     Indication: NAUSEA
     Dosage: 12 MG
     Route: 060
     Dates: start: 20141016
  11. LOCOID LIPOCREAM [Concomitant]
     Active Substance: HYDROCORTISONE BUTYRATE
     Indication: DIARRHOEA
     Dosage: STRENGTH: 0.1% ; DAILY DOSE: 0.1% BD
     Route: 061
     Dates: start: 20141028
  12. PARACETAMOL [Concomitant]
     Active Substance: ACETAMINOPHEN
     Indication: MENORRHAGIA
     Dosage: 4 G
     Route: 048
     Dates: start: 20140701, end: 20140708
  13. CODEINE PHOSPHATE [Concomitant]
     Active Substance: CODEINE PHOSPHATE
     Indication: VOMITING
     Dosage: 120 MG
     Route: 048
     Dates: start: 20141205
  14. CODEINE PHOSPHATE [Concomitant]
     Active Substance: CODEINE PHOSPHATE
     Indication: DIARRHOEA
  15. BI 1356 [Suspect]
     Active Substance: LINAGLIPTIN
     Indication: TYPE 2 DIABETES MELLITUS
     Dosage: 5 MG
     Route: 048
     Dates: start: 20140910, end: 20150224
  16. PROVERA [Concomitant]
     Active Substance: MEDROXYPROGESTERONE ACETATE
     Indication: MENORRHAGIA
     Dosage: DAILY DOSE: 30 MG TDS PRN
     Route: 048
     Dates: start: 2002
  17. PARACETAMOL [Concomitant]
     Active Substance: ACETAMINOPHEN
     Indication: VOMITING
     Dosage: 4 G
     Route: 048
     Dates: start: 20141205
  18. TRANEXAMIC ACID. [Concomitant]
     Active Substance: TRANEXAMIC ACID
     Indication: MENORRHAGIA
     Dosage: DAILY DOSE: 1GRAM QID PRN
     Route: 048
     Dates: start: 2004
  19. CODEINE PHOSPHATE [Concomitant]
     Active Substance: CODEINE PHOSPHATE
     Indication: MENORRHAGIA
     Dosage: 120 MG
     Route: 048
     Dates: start: 20140701, end: 20140708
  20. METFORMIN [Concomitant]
     Active Substance: METFORMIN HYDROCHLORIDE
     Indication: TYPE 2 DIABETES MELLITUS
     Dosage: 2550 MG
     Route: 048
     Dates: start: 20110617
  21. ACYCLOVIR. [Concomitant]
     Active Substance: ACYCLOVIR
     Indication: HERPES SIMPLEX
     Dosage: 800 MG
     Route: 048
     Dates: start: 201310
  22. LOCOID LIPOCREAM [Concomitant]
     Active Substance: HYDROCORTISONE BUTYRATE
     Indication: DERMATITIS ALLERGIC
     Dosage: STRENGTH: 0.1% ; DAILY DOSE: 0.1% BD
     Route: 061
     Dates: start: 20140701, end: 20140708

REACTIONS (1)
  - Urosepsis [Recovered/Resolved]

NARRATIVE: CASE EVENT DATE: 20150225
